FAERS Safety Report 14944784 (Version 1)
Quarter: 2018Q2

REPORT INFORMATION
  Report Type: Report from Study
  Country: US (occurrence: US)
  Receive Date: 20180529
  Receipt Date: 20180529
  Transmission Date: 20180711
  Serious: Yes (Other)
  Sender: FDA-Public Use
  Company Number: US-SUN PHARMACEUTICAL INDUSTRIES LTD-2018US-173670

PATIENT
  Age: 17 Year
  Sex: Female

DRUGS (10)
  1. CARBOPLATIN. [Suspect]
     Active Substance: CARBOPLATIN
     Indication: NEOPLASM RECURRENCE
  2. MELPHALAN. [Concomitant]
     Active Substance: MELPHALAN
     Indication: NEOPLASM RECURRENCE
  3. ETOPOSIDE. [Suspect]
     Active Substance: ETOPOSIDE
     Indication: NEPHROBLASTOMA
     Dosage: 4 CYCLES
     Route: 065
  4. IFOSFAMIDE. [Suspect]
     Active Substance: IFOSFAMIDE
     Indication: NEPHROBLASTOMA
     Dosage: 4 CYCLES
  5. THIOTEPA. [Concomitant]
     Active Substance: THIOTEPA
     Indication: NEOPLASM RECURRENCE
  6. MELPHALAN. [Concomitant]
     Active Substance: MELPHALAN
     Indication: NEPHROBLASTOMA
     Dosage: HIGH DOSE
     Route: 065
  7. ETOPOSIDE. [Suspect]
     Active Substance: ETOPOSIDE
     Indication: NEOPLASM RECURRENCE
  8. IFOSFAMIDE. [Suspect]
     Active Substance: IFOSFAMIDE
     Indication: NEOPLASM RECURRENCE
  9. CARBOPLATIN. [Suspect]
     Active Substance: CARBOPLATIN
     Indication: NEPHROBLASTOMA
     Dosage: 4 CYCLES
     Route: 065
  10. THIOTEPA. [Concomitant]
     Active Substance: THIOTEPA
     Indication: NEPHROBLASTOMA
     Dosage: HIGH DOSE
     Route: 065

REACTIONS (3)
  - Disease recurrence [Unknown]
  - Bone marrow failure [Unknown]
  - Therapeutic response decreased [Unknown]
